FAERS Safety Report 24236791 (Version 4)
Quarter: 2024Q4

REPORT INFORMATION
  Report Type: Report from Study
  Country: US (occurrence: US)
  Receive Date: 20240822
  Receipt Date: 20241025
  Transmission Date: 20250115
  Serious: No
  Sender: DECIPHERA PHARMACEUTICALS
  Company Number: US-DECIPHERA PHARMACEUTICALS LLC-2024US000697

PATIENT
  Age: 54 Year
  Sex: Male

DRUGS (1)
  1. QINLOCK [Suspect]
     Active Substance: RIPRETINIB
     Indication: Gastrointestinal stromal tumour
     Dosage: 150 MILLIGRAM, QD
     Route: 048
     Dates: start: 20240503

REACTIONS (9)
  - Food allergy [Recovering/Resolving]
  - Road traffic accident [Unknown]
  - Musculoskeletal discomfort [Unknown]
  - Muscle tightness [Not Recovered/Not Resolved]
  - Tumour pain [Unknown]
  - Dyspepsia [Unknown]
  - Flatulence [Unknown]
  - Back pain [Unknown]
  - Headache [Unknown]

NARRATIVE: CASE EVENT DATE: 20240101
